FAERS Safety Report 8997177 (Version 1)
Quarter: 2013Q1

REPORT INFORMATION
  Report Type: Spontaneous
  Country: US (occurrence: None)
  Receive Date: 20130102
  Receipt Date: 20130102
  Transmission Date: 20140127
  Serious: Yes (Hospitalization)
  Sender: FDA-Public Use
  Company Number: None

PATIENT
  Age: 67 Year
  Sex: Male

DRUGS (12)
  1. PEMETREXED [Suspect]
     Indication: LUNG NEOPLASM MALIGNANT
     Dosage: DAY 1
     Route: 042
     Dates: start: 20121023, end: 20121204
  2. BAVITUXIMAB [Suspect]
     Dosage: DAY 1,8,15
     Route: 042
     Dates: start: 20121023, end: 20121204
  3. ALBUTEROL NEBULIZERS [Concomitant]
  4. LUNESTA [Concomitant]
  5. TAMSULOSIN [Concomitant]
  6. CITALOPRAM [Concomitant]
  7. FLEXOFENADINE [Concomitant]
  8. DOCUSATE SODIUM [Concomitant]
  9. FLUTICASONE PROPRIONATE [Concomitant]
  10. FIORINAL [Concomitant]
  11. XOLEGEL [Concomitant]
  12. ALBUTEROL [Concomitant]

REACTIONS (2)
  - Deep vein thrombosis [None]
  - Pulmonary embolism [None]
